APPROVED DRUG PRODUCT: CALCITONIN-SALMON
Active Ingredient: CALCITONIN SALMON
Strength: 200 IU/ML
Dosage Form/Route: INJECTABLE;INJECTION
Application: A073690 | Product #001
Applicant: IGI LABORATORIES INC
Approved: Apr 14, 1995 | RLD: No | RS: No | Type: DISCN